FAERS Safety Report 13863122 (Version 4)
Quarter: 2017Q4

REPORT INFORMATION
  Report Type: Report from Study
  Country: US (occurrence: US)
  Receive Date: 20170814
  Receipt Date: 20171011
  Transmission Date: 20180320
  Serious: Yes (Death, Hospitalization, Other)
  Sender: FDA-Public Use
  Company Number: US-GILEAD-2017-0287554

PATIENT
  Age: 58 Year
  Sex: Female
  Weight: 69.39 kg

DRUGS (8)
  1. HYDRALAZINE [Concomitant]
     Active Substance: HYDRALAZINE HYDROCHLORIDE
  2. COREG [Concomitant]
     Active Substance: CARVEDILOL
  3. NORCO [Concomitant]
     Active Substance: ACETAMINOPHEN\HYDROCODONE BITARTRATE
  4. DIOVAN [Concomitant]
     Active Substance: VALSARTAN
  5. AMBRISENTAN [Suspect]
     Active Substance: AMBRISENTAN
     Indication: PULMONARY HYPERTENSION
     Dosage: 5 MG, QD
     Route: 065
     Dates: start: 20160815, end: 20170905
  6. SILDENAFIL. [Concomitant]
     Active Substance: SILDENAFIL
     Indication: PULMONARY HYPERTENSION
     Dosage: 20 MG, TID
     Dates: start: 20160815, end: 20170905
  7. PROCARDIA [Concomitant]
     Active Substance: NIFEDIPINE
  8. AMITRIPTYLLINE [Concomitant]
     Active Substance: AMITRIPTYLINE

REACTIONS (4)
  - Cerebrovascular accident [Unknown]
  - Death [Fatal]
  - Cardiac failure congestive [Unknown]
  - Diabetes mellitus [Unknown]

NARRATIVE: CASE EVENT DATE: 20170709
